FAERS Safety Report 15276894 (Version 1)
Quarter: 2018Q4

REPORT INFORMATION
  Report Type: Spontaneous
  Country: JP (occurrence: LS)
  Receive Date: 20180814
  Receipt Date: 20180814
  Transmission Date: 20190204
  Serious: Yes (Death, Other)
  Sender: FDA-Public Use
  Company Number: LS-JACOBUS PHARMACEUTICAL COMPANY, INC.-2053713

PATIENT
  Age: 30 Year
  Sex: Male
  Weight: 42 kg

DRUGS (6)
  1. PROTIONAMIDE [Suspect]
     Active Substance: PROTIONAMIDE
  2. MOXIFLOXACIN. [Suspect]
     Active Substance: MOXIFLOXACIN
  3. DELAMANID [Suspect]
     Active Substance: DELAMANID
  4. CYCLOSERINE. [Suspect]
     Active Substance: CYCLOSERINE
  5. PASER [Suspect]
     Active Substance: AMINOSALICYLIC ACID
     Indication: TUBERCULOSIS
     Route: 048
     Dates: start: 20180409
  6. CLOFAZIMINE [Suspect]
     Active Substance: CLOFAZIMINE

REACTIONS (7)
  - Haemoglobin decreased [Fatal]
  - Aspartate aminotransferase increased [Fatal]
  - Blood albumin decreased [Fatal]
  - Blood sodium decreased [Unknown]
  - Death [Fatal]
  - Blood alkaline phosphatase increased [Fatal]
  - Gamma-glutamyltransferase decreased [Fatal]
